FAERS Safety Report 8475517-3 (Version None)
Quarter: 2012Q2

REPORT INFORMATION
  Report Type: 
  Country: None (occurrence: None)
  Receive Date: 20120628
  Receipt Date: 20120615
  Transmission Date: 20120825
  Serious: Yes (Life-Threatening, Hospitalization, Other)
  Sender: FDA-Public Use
  Company Number: DE-ROCHE-788632

PATIENT
  Sex: Male
  Weight: 78 kg

DRUGS (20)
  1. AMIODARONE HCL [Concomitant]
  2. MOVIPREP [Concomitant]
     Dosage: FORM: SACHET
  3. MABTHERA [Suspect]
     Indication: NON-HODGKIN'S LYMPHOMA
     Dosage: DOSAGE FORM : INFUSION
     Route: 042
     Dates: start: 20110405, end: 20110414
  4. BENDAMUSTINE AND BENDAMUSTINE [Suspect]
     Dates: start: 20110809, end: 20110819
  5. RAMIPRIL [Concomitant]
     Dosage: 1.25 MG
  6. DOMPERIDONE [Concomitant]
  7. BISOPROLOL FUMARATE [Concomitant]
  8. PLETAL [Concomitant]
  9. DOMPERIDON [Concomitant]
  10. MABTHERA [Suspect]
  11. BENDAMUSTINE AND BENDAMUSTINE [Suspect]
     Dates: start: 20110531, end: 20110630
  12. TICAGRELOR [Concomitant]
  13. MABTHERA [Suspect]
     Dosage: LAST DOSE: 29 JUN 2011
     Dates: start: 20110531, end: 20110630
  14. BENDAMUSTINE AND BENDAMUSTINE [Suspect]
     Indication: NON-HODGKIN'S LYMPHOMA
     Dosage: LAST DOSE: 29 JUN 2011
     Route: 042
  15. ALDACTONE [Concomitant]
  16. BRILINTA [Concomitant]
  17. PANTOPRAZOLE [Concomitant]
  18. TORSEMIDE [Concomitant]
  19. GENERIC COMPONENT(S) NOT KNOWN [Concomitant]
  20. TAMSULOSIN HCL [Concomitant]

REACTIONS (4)
  - MYOCARDIAL INFARCTION [None]
  - HYPOTENSION [None]
  - DYSGEUSIA [None]
  - INFECTION [None]
